FAERS Safety Report 16563467 (Version 3)
Quarter: 2019Q3

REPORT INFORMATION
  Report Type: Spontaneous
  Country: JP (occurrence: JP)
  Receive Date: 20190712
  Receipt Date: 20190910
  Transmission Date: 20191004
  Serious: Yes (Life-Threatening, Hospitalization, Other)
  Sender: FDA-Public Use
  Company Number: JP-AMGEN-JPNSP2019110414

PATIENT
  Age: 76 Year
  Sex: Male
  Weight: 66 kg

DRUGS (5)
  1. ENBREL [Suspect]
     Active Substance: ETANERCEPT
     Indication: RHEUMATOID ARTHRITIS
     Dosage: 50 MILLIGRAM, QWK
     Route: 058
     Dates: start: 20170929, end: 20180501
  2. ACTEMRA [Suspect]
     Active Substance: TOCILIZUMAB
     Dosage: 162 MILLIGRAM, QWK
     Route: 058
     Dates: start: 20180612, end: 20180717
  3. XELJANZ [Suspect]
     Active Substance: TOFACITINIB CITRATE
     Indication: RHEUMATOID ARTHRITIS
     Dosage: 5 MILLIGRAM, QD
     Route: 048
     Dates: start: 20180724, end: 20180910
  4. ACTEMRA [Suspect]
     Active Substance: TOCILIZUMAB
     Indication: RHEUMATOID ARTHRITIS
     Dosage: 162 MILLIGRAM, Q2WK
     Route: 058
     Dates: start: 20180508, end: 20180605
  5. XELJANZ [Suspect]
     Active Substance: TOFACITINIB CITRATE
     Dosage: 5 MILLIGRAM, BID
     Route: 048
     Dates: start: 20180911, end: 20190403

REACTIONS (7)
  - Cytomegalovirus infection [Recovered/Resolved]
  - Pneumothorax [Recovered/Resolved]
  - Epstein-Barr virus test positive [Not Recovered/Not Resolved]
  - Peripheral T-cell lymphoma unspecified [Unknown]
  - Lymphoma [Unknown]
  - Lymphadenopathy [Not Recovered/Not Resolved]
  - Immunodeficiency [Unknown]

NARRATIVE: CASE EVENT DATE: 20181205
